APPROVED DRUG PRODUCT: BRISTAGEN
Active Ingredient: GENTAMICIN SULFATE
Strength: EQ 40MG BASE/ML
Dosage Form/Route: INJECTABLE;INJECTION
Application: A062288 | Product #001
Applicant: BRISTOL LABORATORIES INC DIV BRISTOL MYERS CO
Approved: Approved Prior to Jan 1, 1982 | RLD: No | RS: No | Type: DISCN